FAERS Safety Report 11100732 (Version 2)
Quarter: 2015Q2

REPORT INFORMATION
  Report Type: Report from Study
  Country: US (occurrence: US)
  Receive Date: 20150508
  Receipt Date: 20150616
  Transmission Date: 20150821
  Serious: Yes (Hospitalization, Other)
  Sender: FDA-Public Use
  Company Number: US-ASTRAZENECA-2015SE13201

PATIENT
  Sex: Female

DRUGS (1)
  1. LYNPARZA [Suspect]
     Active Substance: OLAPARIB
     Indication: OVARIAN CANCER
     Route: 048

REACTIONS (15)
  - Hypoaesthesia [Unknown]
  - Chills [Unknown]
  - Decreased appetite [Unknown]
  - Local swelling [Unknown]
  - Flatulence [Unknown]
  - Cerebrovascular accident [Unknown]
  - Diarrhoea [Unknown]
  - Dyspepsia [Unknown]
  - Paraesthesia [Unknown]
  - Abdominal pain upper [Unknown]
  - Jugular vein thrombosis [Unknown]
  - Vomiting [Recovered/Resolved]
  - Visual impairment [Unknown]
  - Abdominal distension [Unknown]
  - Nausea [Unknown]
